FAERS Safety Report 7996534-3 (Version None)
Quarter: 2011Q4

REPORT INFORMATION
  Report Type: 
  Country: None (occurrence: None)
  Receive Date: 20111221
  Receipt Date: 20111213
  Transmission Date: 20120403
  Serious: Yes (Hospitalization)
  Sender: FDA-Public Use
  Company Number: US-BIOGENIDEC-2011BI007449

PATIENT
  Age: 26 Year
  Sex: Female

DRUGS (2)
  1. MULTI-VITAMINS [Concomitant]
  2. TYSABRI [Suspect]
     Indication: MULTIPLE SCLEROSIS
     Route: 042
     Dates: start: 20080122, end: 20110124

REACTIONS (2)
  - FAILED INDUCTION OF LABOUR [None]
  - PREGNANCY [None]
